FAERS Safety Report 7212872-6 (Version None)
Quarter: 2011Q1

REPORT INFORMATION
  Report Type: 
  Country: None (occurrence: None)
  Receive Date: 20110106
  Receipt Date: 20110103
  Transmission Date: 20110831
  Serious: Yes (Other)
  Sender: FDA-Public Use
  Company Number: US-JNJFOC-20100905038

PATIENT
  Sex: Female
  Weight: 100 kg

DRUGS (10)
  1. HYZAAR [Concomitant]
     Indication: HYPERTENSION
     Route: 048
  2. ZOLOFT [Concomitant]
     Indication: FEELING OF RELAXATION
     Route: 048
  3. BACTRIM DS [Concomitant]
     Indication: KIDNEY INFECTION
     Route: 048
  4. NORVASC [Concomitant]
     Indication: HYPERTENSION
     Route: 048
  5. LEVAQUIN [Suspect]
     Indication: URINARY TRACT INFECTION
     Route: 048
  6. KLOR-CON [Concomitant]
     Indication: MUSCLE SPASMS
     Route: 048
  7. BACTRIM DS [Concomitant]
     Indication: URINARY TRACT INFECTION
     Route: 048
  8. NITROGLYCERIN [Concomitant]
     Indication: CARDIAC DISORDER
     Route: 048
  9. AVANDAMET [Concomitant]
     Indication: DIABETES MELLITUS
     Route: 048
  10. CORGARD [Concomitant]
     Indication: CARDIAC DISORDER
     Route: 048

REACTIONS (8)
  - HEART RATE IRREGULAR [None]
  - NERVOUSNESS [None]
  - DRUG HYPERSENSITIVITY [None]
  - LIP DRY [None]
  - SWELLING FACE [None]
  - POOR QUALITY SLEEP [None]
  - CHEST PAIN [None]
  - NAUSEA [None]
